FAERS Safety Report 24995647 (Version 2)
Quarter: 2025Q1

REPORT INFORMATION
  Report Type: Spontaneous
  Country: JP (occurrence: JP)
  Receive Date: 20250221
  Receipt Date: 20250310
  Transmission Date: 20250409
  Serious: Yes (Other)
  Sender: SANOFI AVENTIS
  Company Number: JP-SA-2025SA048697

PATIENT
  Age: 75 Year
  Sex: Female

DRUGS (2)
  1. CLOPIDOGREL BISULFATE [Suspect]
     Active Substance: CLOPIDOGREL BISULFATE
     Indication: Cerebral infarction
     Route: 048
  2. CLOPIDOGREL BISULFATE [Suspect]
     Active Substance: CLOPIDOGREL BISULFATE
     Route: 048

REACTIONS (13)
  - Paranasal sinus mass [Recovered/Resolved]
  - Condition aggravated [Recovered/Resolved]
  - IIIrd nerve paralysis [Recovered/Resolved]
  - Visual acuity reduced [Recovered/Resolved]
  - Eye pain [Recovered/Resolved]
  - Eyelid ptosis [Recovered/Resolved]
  - Diplopia [Recovered/Resolved]
  - Eye movement disorder [Recovered/Resolved]
  - Venous haemorrhage [Recovered/Resolved]
  - Pallor [Recovered/Resolved]
  - Anaemia [Unknown]
  - Internal haemorrhage [Recovered/Resolved]
  - Post procedural haemorrhage [Recovered/Resolved]
